FAERS Safety Report 16427624 (Version 1)
Quarter: 2019Q2

REPORT INFORMATION
  Report Type: Report from Study
  Country: AU (occurrence: AU)
  Receive Date: 20190613
  Receipt Date: 20190613
  Transmission Date: 20190711
  Serious: Yes (Other)
  Sender: FDA-Public Use
  Company Number: AU-MYLANLABS-2019M1054751

PATIENT
  Age: 31 Year
  Sex: Male

DRUGS (1)
  1. EMTRICITABINE,TENOFOVIR MYLAN [Suspect]
     Active Substance: EMTRICITABINE\TENOFOVIR
     Indication: PROPHYLAXIS
     Dosage: 1 T, QD
     Route: 048
     Dates: start: 20180125, end: 20180225

REACTIONS (1)
  - HIV test positive [Not Recovered/Not Resolved]

NARRATIVE: CASE EVENT DATE: 20190131
